FAERS Safety Report 4810849-9 (Version None)
Quarter: 2005Q4

REPORT INFORMATION
  Report Type: 
  Country: None (occurrence: None)
  Receive Date: 20051025
  Receipt Date: 20050624
  Transmission Date: 20060501
  Serious: Yes (Hospitalization)
  Sender: FDA-Public Use
  Company Number: 2005BH001052

PATIENT
  Sex: Male

DRUGS (1)
  1. DIANEAL [Suspect]
     Dosage: IP
     Route: 033

REACTIONS (7)
  - ABDOMINAL DISTENSION [None]
  - CONSTIPATION [None]
  - DEHYDRATION [None]
  - DIFFICULTY IN WALKING [None]
  - FEELING ABNORMAL [None]
  - FLUID RETENTION [None]
  - MEDICAL DEVICE COMPLICATION [None]
